FAERS Safety Report 8492390-8 (Version None)
Quarter: 2012Q3

REPORT INFORMATION
  Report Type: 
  Country: None (occurrence: None)
  Receive Date: 20120706
  Receipt Date: 20120629
  Transmission Date: 20120928
  Serious: Yes (Hospitalization)
  Sender: FDA-Public Use
  Company Number: JP-B.I. PHARMACEUTICALS,INC./RIDGEFIELD-2012-BP-13092NB

PATIENT
  Sex: Male
  Weight: 63.6 kg

DRUGS (5)
  1. FAMOTIDINE [Concomitant]
     Indication: GASTROINTESTINAL DISORDER
     Dosage: 30 MG
     Route: 048
     Dates: start: 20120530
  2. PRADAXA [Suspect]
     Indication: ATRIAL FIBRILLATION
     Dosage: 300 MG
     Route: 048
     Dates: start: 20120509
  3. PRADAXA [Suspect]
     Route: 048
     Dates: start: 20120605
  4. ADALAT CC [Concomitant]
     Indication: HYPERTENSION
     Dosage: 40 MG
     Route: 048
     Dates: start: 20080304
  5. LANSOPRAZOLE [Concomitant]
     Indication: GASTROINTESTINAL DISORDER
     Dosage: 30 MG
     Route: 048
     Dates: start: 20120530

REACTIONS (3)
  - MELAENA [None]
  - COLON CANCER [None]
  - ABDOMINAL DISCOMFORT [None]
